FAERS Safety Report 4382295-6 (Version None)
Quarter: 2004Q2

REPORT INFORMATION
  Report Type: 
  Country: None (occurrence: None)
  Receive Date: 20040621
  Receipt Date: 20040621
  Transmission Date: 20050107
  Serious: Yes (Hospitalization)
  Sender: FDA-Public Use
  Company Number: None

PATIENT
  Sex: Female

DRUGS (7)
  1. TAXOL [Suspect]
     Indication: BREAST CANCER
     Dosage: 80 MG/M2 IV Q WK 16
     Route: 042
     Dates: start: 20040427
  2. TAXOL [Suspect]
     Indication: BREAST CANCER
     Dosage: 80 MG/M2 IV Q WK 16
     Route: 042
     Dates: start: 20040504
  3. TAXOL [Suspect]
     Indication: BREAST CANCER
     Dosage: 80 MG/M2 IV Q WK 16
     Route: 042
     Dates: start: 20040518
  4. TAXOL [Suspect]
     Indication: BREAST CANCER
     Dosage: 80 MG/M2 IV Q WK 16
     Route: 042
     Dates: start: 20040525
  5. TAXOL [Suspect]
     Indication: BREAST CANCER
     Dosage: 80 MG/M2 IV Q WK 16
     Route: 042
     Dates: start: 20040601
  6. CARBOPLATIN [Suspect]
     Indication: BREAST CANCER
     Dosage: AUC 6 @ WJ 1,5,9,13
     Dates: start: 20040427
  7. CARBOPLATIN [Suspect]
     Indication: BREAST CANCER
     Dosage: AUC 6 @ WJ 1,5,9,13
     Dates: start: 20040525

REACTIONS (4)
  - BREAST TENDERNESS [None]
  - CELLULITIS [None]
  - ERYTHEMA [None]
  - INFUSION RELATED REACTION [None]
